FAERS Safety Report 6962927-6 (Version None)
Quarter: 2010Q3

REPORT INFORMATION
  Report Type: 
  Country: None (occurrence: None)
  Receive Date: 20100902
  Receipt Date: 20100812
  Transmission Date: 20110219
  Serious: No
  Sender: FDA-Public Use
  Company Number: US-PFIZER INC-2010102213

PATIENT
  Sex: Female

DRUGS (1)
  1. CLINDAMYCIN HCL [Suspect]
     Indication: CARDIAC MURMUR
     Dosage: 150 MG, UNK
     Route: 048

REACTIONS (2)
  - DRUG HYPERSENSITIVITY [None]
  - PRODUCT TASTE ABNORMAL [None]
